FAERS Safety Report 19454179 (Version 1)
Quarter: 2021Q2

REPORT INFORMATION
  Report Type: Spontaneous
  Country: DE (occurrence: DE)
  Receive Date: 20210623
  Receipt Date: 20210623
  Transmission Date: 20210717
  Serious: Yes (Hospitalization, Other)
  Sender: FDA-Public Use
  Company Number: NVSC2021DE134540

PATIENT
  Age: 79 Year
  Sex: Male

DRUGS (3)
  1. PACLITAXEL. [Suspect]
     Active Substance: PACLITAXEL
     Indication: LUNG NEOPLASM MALIGNANT
     Dosage: 1 CYCLE
     Route: 065
  2. CARBOPLATIN. [Suspect]
     Active Substance: CARBOPLATIN
     Indication: LUNG NEOPLASM MALIGNANT
     Dosage: 1 CYCLE
     Route: 065
  3. PEMBROLIZUMAB. [Suspect]
     Active Substance: PEMBROLIZUMAB
     Indication: LUNG NEOPLASM MALIGNANT
     Dosage: UNK
     Route: 065

REACTIONS (5)
  - Thrombocytopenia [Unknown]
  - Malignant neoplasm progression [Unknown]
  - Neutropenia [Unknown]
  - Fatigue [Unknown]
  - Blood thyroid stimulating hormone abnormal [Unknown]

NARRATIVE: CASE EVENT DATE: 202001
